FAERS Safety Report 7935674-1 (Version None)
Quarter: 2011Q4

REPORT INFORMATION
  Report Type: 
  Country: None (occurrence: None)
  Receive Date: 20111121
  Receipt Date: 20111111
  Transmission Date: 20120403
  Serious: Yes (Hospitalization, Other)
  Sender: FDA-Public Use
  Company Number: 2011MA004945

PATIENT
  Age: 45 Year
  Sex: Male
  Weight: 94.3482 kg

DRUGS (15)
  1. SIMVASTATIN [Concomitant]
  2. HYDROCHLOROTHIAZIDE [Concomitant]
  3. MINERAL OIL [Concomitant]
  4. CLARITIN [Concomitant]
  5. HYDROXYZINE [Concomitant]
  6. TRAMADOL HCL [Suspect]
     Indication: PAIN
     Dates: start: 20090625, end: 20100715
  7. TRAMADOL HCL [Suspect]
     Indication: NEUROPATHY PERIPHERAL
     Dosage: 800 MG;TID PO
     Route: 048
     Dates: start: 20090625, end: 20100715
  8. OMEPRAZOLE [Concomitant]
  9. CALCIUM CARBONATE [Concomitant]
  10. FLUNISOLIDE [Concomitant]
  11. RIFAMPIN INH [Concomitant]
  12. VITAMIN B COMPLEX CAP [Concomitant]
  13. GABAPENTIN [Suspect]
     Indication: NEUROPATHY PERIPHERAL
     Dosage: 800 MG; TID; PO
     Route: 048
     Dates: start: 20090625, end: 20100715
  14. ASPIRIN [Concomitant]
  15. POLYVINIL ALCOHOL [Concomitant]

REACTIONS (13)
  - VOMITING [None]
  - HAEMATEMESIS [None]
  - OESOPHAGEAL HAEMORRHAGE [None]
  - INJURY [None]
  - IMPAIRED GASTRIC EMPTYING [None]
  - EROSIVE OESOPHAGITIS [None]
  - LIMB OPERATION [None]
  - GASTRIC DILATATION [None]
  - CHEST PAIN [None]
  - HAEMATOCHEZIA [None]
  - WRONG TECHNIQUE IN DRUG USAGE PROCESS [None]
  - MALAISE [None]
  - HICCUPS [None]
